FAERS Safety Report 19196336 (Version 1)
Quarter: 2021Q2

REPORT INFORMATION
  Report Type: Spontaneous
  Country: CN (occurrence: CN)
  Receive Date: 20210429
  Receipt Date: 20210429
  Transmission Date: 20210717
  Serious: Yes (Hospitalization, Other)
  Sender: FDA-Public Use
  Company Number: CN-TOPROL-2021000077

PATIENT
  Age: 53 Year
  Sex: Male
  Weight: 68 kg

DRUGS (6)
  1. CLOPIDOGREL [Concomitant]
     Active Substance: CLOPIDOGREL BISULFATE
     Dates: start: 20210323, end: 20210402
  2. EZETIMIBE. [Concomitant]
     Active Substance: EZETIMIBE
     Dates: start: 20210323, end: 20210401
  3. ATORVASTATIN [Concomitant]
     Active Substance: ATORVASTATIN
     Dates: start: 20210323, end: 20210401
  4. ENOXAPARIN [Concomitant]
     Active Substance: ENOXAPARIN
     Dates: start: 20210330, end: 20210402
  5. METOPROLOL SUCCINATE. [Suspect]
     Active Substance: METOPROLOL SUCCINATE
     Route: 048
     Dates: start: 20210323
  6. ASPIRIN. [Suspect]
     Active Substance: ASPIRIN
     Route: 048
     Dates: start: 20210323

REACTIONS (7)
  - Ocular discomfort [Recovering/Resolving]
  - Product use in unapproved indication [Unknown]
  - Conjunctivitis [Unknown]
  - Vision blurred [Recovering/Resolving]
  - Infection [Unknown]
  - Rash [Recovering/Resolving]
  - Drug eruption [Unknown]

NARRATIVE: CASE EVENT DATE: 20210330
